FAERS Safety Report 6877805-0 (Version None)
Quarter: 2010Q3

REPORT INFORMATION
  Report Type: 
  Country: None (occurrence: None)
  Receive Date: 20100727
  Receipt Date: 20100331
  Transmission Date: 20110219
  Serious: No
  Sender: FDA-Public Use
  Company Number: US-ABBOTT-10P-163-0636526-00

PATIENT
  Sex: Female

DRUGS (2)
  1. SYNTHROID [Suspect]
     Indication: PRODUCT USED FOR UNKNOWN INDICATION
     Dosage: 50 AND 75 MCG ALTERNATE
     Dates: start: 20090601
  2. SYNTHROID [Suspect]
     Dates: start: 20090601

REACTIONS (6)
  - FLUSHING [None]
  - INSOMNIA [None]
  - NERVOUSNESS [None]
  - PALPITATIONS [None]
  - PREMENSTRUAL SYNDROME [None]
  - TREMOR [None]
